FAERS Safety Report 5612934-0 (Version None)
Quarter: 2008Q1

REPORT INFORMATION
  Report Type: 
  Country: None (occurrence: None)
  Receive Date: 20080204
  Receipt Date: 20080110
  Transmission Date: 20080703
  Serious: No
  Sender: FDA-Public Use
  Company Number: US-BOEHRINGER INGELHEIM GMBH, GERMANY-2007-BP-06326BP

PATIENT
  Sex: Female

DRUGS (8)
  1. AGGRENOX [Suspect]
     Indication: TRANSIENT ISCHAEMIC ATTACK
     Route: 048
     Dates: start: 20061103
  2. SYNTHROID [Concomitant]
  3. ASCORBIC ACID [Concomitant]
  4. VITAMIN CAP [Concomitant]
  5. OMEGA 3 FISH OIL [Concomitant]
  6. TYLENOL W/ CODEINE NO. 3 [Concomitant]
     Indication: MIGRAINE
  7. PHENERGAN HCL [Concomitant]
     Indication: MIGRAINE
  8. FEXOFENADINE HCL [Concomitant]
     Dates: start: 20070518

REACTIONS (6)
  - ASTHENIA [None]
  - CONSTIPATION [None]
  - DEAFNESS [None]
  - DIARRHOEA [None]
  - FATIGUE [None]
  - PAIN IN EXTREMITY [None]
